FAERS Safety Report 5490685-3 (Version None)
Quarter: 2007Q4

REPORT INFORMATION
  Report Type: 
  Country: None (occurrence: None)
  Receive Date: 20071019
  Receipt Date: 20071011
  Transmission Date: 20080405
  Serious: Yes (Life-Threatening, Other)
  Sender: FDA-Public Use
  Company Number: US-PURDUE-USA_2007_0029175

PATIENT
  Sex: Male

DRUGS (1)
  1. OXYCONTIN [Suspect]
     Indication: PAIN
     Dosage: 40 MG, SEE TEXT
     Route: 048
     Dates: start: 20050204, end: 20060731

REACTIONS (8)
  - AGGRESSION [None]
  - DRUG DEPENDENCE [None]
  - MENTAL DISORDER [None]
  - OVERDOSE [None]
  - RESPIRATORY ARREST [None]
  - ROAD TRAFFIC ACCIDENT [None]
  - STUPOR [None]
  - SUICIDAL IDEATION [None]
